FAERS Safety Report 16536150 (Version 8)
Quarter: 2020Q2

REPORT INFORMATION
  Report Type: Spontaneous
  Country: GR (occurrence: GR)
  Receive Date: 20190705
  Receipt Date: 20200526
  Transmission Date: 20200713
  Serious: Yes (Death, Other)
  Sender: FDA-Public Use
  Company Number: PHHY2019GR155099

PATIENT
  Age: 79 Year
  Sex: Female

DRUGS (11)
  1. PANOBINOSTAT [Suspect]
     Active Substance: PANOBINOSTAT
     Indication: PLASMA CELL LEUKAEMIA
     Dosage: UNK
     Route: 065
  2. DEXAMETHASONE. [Suspect]
     Active Substance: DEXAMETHASONE
     Indication: PLASMA CELL MYELOMA
     Dosage: UNK
     Route: 065
  3. DOXORUBICIN [Suspect]
     Active Substance: DOXORUBICIN
     Indication: PRODUCT USED FOR UNKNOWN INDICATION
     Dosage: UNK
     Route: 065
  4. PANOBINOSTAT [Suspect]
     Active Substance: PANOBINOSTAT
     Indication: PLASMACYTOMA
  5. LENALIDOMIDE [Suspect]
     Active Substance: LENALIDOMIDE
     Indication: PLASMA CELL MYELOMA
     Dosage: UNK
     Route: 065
  6. IXAZOMIB [Suspect]
     Active Substance: IXAZOMIB
     Indication: PLASMA CELL MYELOMA
  7. POMALIDOMIDE [Suspect]
     Active Substance: POMALIDOMIDE
     Indication: PLASMA CELL MYELOMA
     Dosage: UNK
     Route: 065
  8. PANOBINOSTAT [Suspect]
     Active Substance: PANOBINOSTAT
     Indication: PLASMA CELL MYELOMA
  9. BORTEZOMIB. [Suspect]
     Active Substance: BORTEZOMIB
     Indication: PLASMA CELL MYELOMA
     Dosage: UNK
     Route: 065
  10. IXAZOMIB [Suspect]
     Active Substance: IXAZOMIB
     Indication: PLASMA CELL LEUKAEMIA
     Dosage: UNK
     Route: 065
  11. DARATUMUMAB [Suspect]
     Active Substance: DARATUMUMAB
     Indication: PLASMA CELL MYELOMA
     Dosage: UNK
     Route: 042

REACTIONS (9)
  - Drug ineffective [Unknown]
  - Lymphadenopathy [Unknown]
  - Diarrhoea [Unknown]
  - Respiratory tract infection [Fatal]
  - Plasma cell myeloma [Unknown]
  - Abdominal pain [Unknown]
  - Plasma cell leukaemia [Unknown]
  - Plasmacytoma [Not Recovered/Not Resolved]
  - Product use in unapproved indication [Unknown]
